FAERS Safety Report 4865121-8 (Version None)
Quarter: 2005Q4

REPORT INFORMATION
  Report Type: 
  Country: None (occurrence: None)
  Receive Date: 20051221
  Receipt Date: 20051221
  Transmission Date: 20060501
  Serious: Yes (Hospitalization)
  Sender: FDA-Public Use
  Company Number: None

PATIENT
  Age: 60 Year
  Sex: Male

DRUGS (15)
  1. IBUPROFEN [Suspect]
     Dosage: 800 MG PO TID
     Route: 048
     Dates: start: 20050909, end: 20050911
  2. PERCOCET [Concomitant]
  3. TERAZOSIN [Concomitant]
  4. SERTRALINE HCL [Concomitant]
  5. ALPRAZOLAM [Concomitant]
  6. ALBUTEROL [Concomitant]
  7. SODIUM CHLORIDE NASAL SPRAY [Concomitant]
  8. OMEPRAZOLE [Concomitant]
  9. FLUTICASONE-SALMETEROL [Concomitant]
  10. TIOTROPIUM BROMIDE [Concomitant]
  11. PRAMIPEXOLE DIHYDROCHLORIDE [Concomitant]
  12. ENALAPRIL [Concomitant]
  13. AMOXICILLIN [Concomitant]
  14. LORATADINE [Concomitant]
  15. GABAPENTIN [Concomitant]

REACTIONS (1)
  - GASTROINTESTINAL HAEMORRHAGE [None]
